FAERS Safety Report 9510580 (Version 1)
Quarter: 2013Q3

REPORT INFORMATION
  Report Type: Spontaneous
  Country: TR (occurrence: TR)
  Receive Date: 20130909
  Receipt Date: 20130909
  Transmission Date: 20140515
  Serious: Yes (Death)
  Sender: FDA-Public Use
  Company Number: TR-PFIZER INC-2013259386

PATIENT
  Age: 26 Year
  Sex: Female

DRUGS (1)
  1. LUSTRAL [Suspect]

REACTIONS (1)
  - Completed suicide [Fatal]
